FAERS Safety Report 5216441-9 (Version None)
Quarter: 2006Q4

REPORT INFORMATION
  Report Type: 
  Country: None (occurrence: None)
  Receive Date: 20061127
  Receipt Date: 20060901
  Transmission Date: 20070319
  Serious: Yes (Hospitalization)
  Sender: FDA-Public Use
  Company Number: US-JNJFOC-20060900726

PATIENT
  Age: 45 Year
  Sex: Female
  Weight: 75.2971 kg

DRUGS (1)
  1. ORTHO TRI-CYCLEN LO [Suspect]
     Indication: MENORRHAGIA
     Dosage: 1 DOSE(S), 1 IN 1 DAY
     Dates: start: 20060301, end: 20060701

REACTIONS (1)
  - PULMONARY EMBOLISM [None]
